FAERS Safety Report 10788767 (Version 2)
Quarter: 2015Q1

REPORT INFORMATION
  Report Type: Spontaneous
  Country: US (occurrence: US)
  Receive Date: 20150212
  Receipt Date: 20150313
  Transmission Date: 20150721
  Serious: Yes (Disabling, Other)
  Sender: FDA-Public Use
  Company Number: US-ASTELLAS-2015US004122

PATIENT
  Age: 63 Year
  Sex: Male

DRUGS (14)
  1. HYDRODIURIL [Concomitant]
     Active Substance: HYDROCHLOROTHIAZIDE
     Indication: PRODUCT USED FOR UNKNOWN INDICATION
     Route: 048
  2. DEGARELIX [Concomitant]
     Active Substance: DEGARELIX
     Indication: PRODUCT USED FOR UNKNOWN INDICATION
     Dosage: UNK UNK, UNKNOWN FREQ.
     Route: 065
     Dates: start: 20110927
  3. OXYCODONE [Concomitant]
     Active Substance: OXYCODONE
     Indication: PAIN
     Dosage: 10 MG, EVERY 4 HOURS AS NEEDED
     Route: 048
     Dates: start: 20141023, end: 20141120
  4. PRINIVIL [Concomitant]
     Active Substance: LISINOPRIL
     Indication: PRODUCT USED FOR UNKNOWN INDICATION
     Route: 048
  5. XOFIGO [Concomitant]
     Active Substance: RADIUM RA-223 DICHLORIDE
     Indication: PRODUCT USED FOR UNKNOWN INDICATION
     Dosage: UNK UNK, UNKNOWN FREQ.
     Route: 065
     Dates: start: 20140828, end: 20141023
  6. LUPRON [Concomitant]
     Active Substance: LEUPROLIDE ACETATE
     Indication: PRODUCT USED FOR UNKNOWN INDICATION
     Dosage: 30 MG, FOR EVERY 4 MONTHS
     Route: 030
     Dates: start: 20111101, end: 20141120
  7. OXYCODONE [Concomitant]
     Active Substance: OXYCODONE
     Indication: PROSTATE CANCER
     Dosage: 10 MG, EVERY 4 HOURS AS NEEDED10 MG, OTHER
     Route: 048
     Dates: start: 20141120
  8. NORVASC [Concomitant]
     Active Substance: AMLODIPINE BESYLATE
     Indication: PRODUCT USED FOR UNKNOWN INDICATION
     Route: 048
  9. XTANDI [Suspect]
     Active Substance: ENZALUTAMIDE
     Route: 048
     Dates: start: 20140724
  10. PREDNISONE. [Concomitant]
     Active Substance: PREDNISONE
     Indication: DISEASE PROGRESSION
     Dosage: 5 MG, BID
     Route: 065
     Dates: start: 20130204, end: 20140619
  11. ZESTRIL [Concomitant]
     Active Substance: LISINOPRIL
     Indication: PRODUCT USED FOR UNKNOWN INDICATION
     Route: 048
  12. ABIRATERONE [Concomitant]
     Active Substance: ABIRATERONE
     Indication: PRODUCT USED FOR UNKNOWN INDICATION
     Route: 065
     Dates: start: 20130204, end: 20140619
  13. XTANDI [Suspect]
     Active Substance: ENZALUTAMIDE
     Indication: PROSTATE CANCER
     Route: 048
     Dates: start: 20140621
  14. DELTASONE                          /00016001/ [Concomitant]
     Indication: PRODUCT USED FOR UNKNOWN INDICATION
     Dosage: 1 TABLET BY MOUTH, 2 TIMES DAILY

REACTIONS (4)
  - Malignant neoplasm progression [Unknown]
  - Pain [Unknown]
  - Fatigue [Unknown]
  - Abasia [Unknown]

NARRATIVE: CASE EVENT DATE: 201501
